FAERS Safety Report 9341433 (Version 1)
Quarter: 2013Q2

REPORT INFORMATION
  Report Type: Spontaneous
  Country: US (occurrence: None)
  Receive Date: 20130610
  Receipt Date: 20130610
  Transmission Date: 20140414
  Serious: Yes (Other)
  Sender: FDA-Public Use
  Company Number: None

PATIENT
  Sex: Male
  Weight: 122.47 kg

DRUGS (3)
  1. ATORVASTATIN [Suspect]
     Indication: HYPERLIPIDAEMIA
     Route: 048
  2. ATORVASTATIN [Suspect]
     Indication: BLOOD PRESSURE INCREASED
     Route: 048
  3. IC LISINOPRIL, 2.5 MG [Suspect]
     Route: 048

REACTIONS (3)
  - Blood urine present [None]
  - Faeces discoloured [None]
  - Abnormal faeces [None]
